FAERS Safety Report 19458674 (Version 5)
Quarter: 2021Q4

REPORT INFORMATION
  Report Type: Report from Study
  Country: BR (occurrence: BR)
  Receive Date: 20210624
  Receipt Date: 20211102
  Transmission Date: 20220303
  Serious: Yes (Other)
  Sender: FDA-Public Use
  Company Number: NVSC2021BR138890

PATIENT
  Sex: Male
  Weight: 59 kg

DRUGS (23)
  1. COSENTYX [Suspect]
     Active Substance: SECUKINUMAB
     Indication: Psoriasis
     Dosage: 150 MG, QMO EVERY 2 APPLICATION FOR WEEK (DIDN^T KNEW IF WAS AUG OR SEP) (INFORMED THAT ALTERNATIVES
     Route: 058
     Dates: start: 201809
  2. COSENTYX [Suspect]
     Active Substance: SECUKINUMAB
     Indication: Psoriatic arthropathy
     Dosage: 150 MG, QMO
     Route: 065
     Dates: start: 202104
  3. COSENTYX [Suspect]
     Active Substance: SECUKINUMAB
     Dosage: 300 MG, QMO (2 APPLICATIONS OF 150)
     Route: 058
     Dates: start: 202105
  4. COSENTYX [Suspect]
     Active Substance: SECUKINUMAB
     Dosage: 300 MG, QMO (2 APPLICATIONS OF 150)
     Route: 065
     Dates: start: 20210601
  5. COSENTYX [Suspect]
     Active Substance: SECUKINUMAB
     Dosage: 300 MG, QMO
     Route: 058
     Dates: start: 20210801
  6. COSENTYX [Suspect]
     Active Substance: SECUKINUMAB
     Dosage: 300 MG, QMO
     Route: 058
     Dates: start: 20210902
  7. SIMVASTATIN [Suspect]
     Active Substance: SIMVASTATIN
     Indication: Blood cholesterol increased
     Dosage: 1 DF, QD (AT NIGHT)
     Route: 048
  8. SIMVASTATIN [Suspect]
     Active Substance: SIMVASTATIN
     Dosage: 2 DF ( 2 TABLETS OF 20 MG) 1 AT DAY AND 1 AT NIGHT
     Route: 048
  9. PREDNISONE [Concomitant]
     Active Substance: PREDNISONE
     Indication: Psoriasis
     Dosage: 1 DF, QD
     Route: 048
     Dates: start: 2018
  10. PREDNISONE [Concomitant]
     Active Substance: PREDNISONE
     Indication: Psoriatic arthropathy
  11. PREDNISONE [Concomitant]
     Active Substance: PREDNISONE
     Indication: Pain
  12. LEFLUNOMIDE [Concomitant]
     Active Substance: LEFLUNOMIDE
     Indication: Psoriasis
     Dosage: 1 DF, QD
     Route: 048
     Dates: start: 2018
  13. LEFLUNOMIDE [Concomitant]
     Active Substance: LEFLUNOMIDE
     Indication: Psoriatic arthropathy
  14. LOSARTAN [Concomitant]
     Active Substance: LOSARTAN
     Indication: Hypertension
     Dosage: 1 DF, Q12H
     Route: 048
  15. HYDROCHLOROTHIAZIDE [Concomitant]
     Active Substance: HYDROCHLOROTHIAZIDE
     Indication: Hypertension
     Dosage: 1 DF, QD (AT MORNING)
     Route: 048
  16. CIPROFIBRATE [Concomitant]
     Active Substance: CIPROFIBRATE
     Indication: Blood cholesterol increased
     Dosage: 1 DF, QD (AT NIGHT)
     Route: 048
  17. SERTRALINE [Concomitant]
     Active Substance: SERTRALINE HYDROCHLORIDE
     Indication: Insomnia
     Dosage: 1 DF, QD (AT NIGHT) (BETWEEM MAR AND APR)
     Route: 048
     Dates: start: 2021
  18. ASPIRIN [Concomitant]
     Active Substance: ASPIRIN
     Indication: Anticoagulant therapy
     Dosage: 1 DF, QD (AFTER LUNCH)
     Route: 048
  19. OMEPRAZOLE [Concomitant]
     Active Substance: OMEPRAZOLE
     Indication: Multiple drug therapy
     Dosage: 2 DF, QD (AT FAST)
     Route: 048
  20. OMEGA 3 [Concomitant]
     Active Substance: CAPSAICIN
     Indication: Thinking abnormal
     Dosage: 2 DF, QD (AT FAST)
     Route: 048
     Dates: start: 202103
  21. METFORMIN [Concomitant]
     Active Substance: METFORMIN HYDROCHLORIDE
     Indication: Diabetes mellitus
     Dosage: 1 DF, TID (STARTED MANY YEARS AGO)
     Route: 048
  22. GLYBURIDE [Concomitant]
     Active Substance: GLYBURIDE
     Indication: Diabetes mellitus
     Dosage: 4 DF (2 TABLETS IN THE MORNING AND 2 TABLETS FOR LUNCH) STARTED MANY YEARS AGO
     Route: 048
  23. INSULIN NOS [Concomitant]
     Active Substance: INSULIN NOS
     Indication: Diabetes mellitus
     Dosage: 1 DF, QD (1 APPLICATION (APPLY ON THE THIGH, OR BELLY OR ARM) STARTED 2 MONTHS AGO
     Route: 058

REACTIONS (17)
  - Ocular hypertension [Unknown]
  - Glaucoma [Not Recovered/Not Resolved]
  - Intraocular pressure increased [Recovered/Resolved]
  - Intraocular pressure test abnormal [Not Recovered/Not Resolved]
  - Hypovitaminosis [Unknown]
  - Blood triglycerides increased [Unknown]
  - Pain in extremity [Not Recovered/Not Resolved]
  - Cataract [Not Recovered/Not Resolved]
  - Intraocular pressure increased [Not Recovered/Not Resolved]
  - Eye disorder [Unknown]
  - Arthralgia [Not Recovered/Not Resolved]
  - Bone pain [Not Recovered/Not Resolved]
  - Visual impairment [Not Recovered/Not Resolved]
  - Pain [Not Recovered/Not Resolved]
  - Arthritis [Unknown]
  - Blood cholesterol increased [Not Recovered/Not Resolved]
  - Eye pain [Recovering/Resolving]

NARRATIVE: CASE EVENT DATE: 20180101
